FAERS Safety Report 21268448 (Version 1)
Quarter: 2022Q3

REPORT INFORMATION
  Report Type: Spontaneous
  Country: US (occurrence: US)
  Receive Date: 20220830
  Receipt Date: 20220830
  Transmission Date: 20221027
  Serious: No
  Sender: FDA-Public Use
  Company Number: US-GSKCCFUS-Case-01477590_AE-84423

PATIENT
  Age: 36 Year
  Sex: Female

DRUGS (1)
  1. BENLYSTA [Suspect]
     Active Substance: BELIMUMAB
     Indication: Systemic lupus erythematosus
     Dosage: 200 MG/ML
     Route: 058
     Dates: start: 2019

REACTIONS (5)
  - Injection site dermatitis [Recovered/Resolved]
  - Injection site erythema [Unknown]
  - Device use error [Unknown]
  - Exposure via skin contact [Unknown]
  - Underdose [Unknown]

NARRATIVE: CASE EVENT DATE: 20220824
